FAERS Safety Report 5678851-5 (Version None)
Quarter: 2008Q1

REPORT INFORMATION
  Report Type: 
  Country: None (occurrence: None)
  Receive Date: 20080321
  Receipt Date: 20080312
  Transmission Date: 20080703
  Serious: Yes (Other)
  Sender: FDA-Public Use
  Company Number: 2008US000729

PATIENT
  Age: 33 Year
  Sex: Male

DRUGS (3)
  1. PROGRAF [Suspect]
     Indication: RENAL TRANSPLANT
     Dosage: 3.5 MG, BID, ORAL
     Route: 048
     Dates: start: 20061214
  2. CELLCEPT [Concomitant]
  3. PREDNISOLONE ACETATE [Concomitant]

REACTIONS (5)
  - COMPLICATIONS OF TRANSPLANTED KIDNEY [None]
  - INFECTION IN AN IMMUNOCOMPROMISED HOST [None]
  - KIDNEY INFECTION [None]
  - RENAL TRANSPLANT [None]
  - SURGICAL PROCEDURE REPEATED [None]
